FAERS Safety Report 25345683 (Version 2)
Quarter: 2025Q2

REPORT INFORMATION
  Report Type: Spontaneous
  Country: US (occurrence: US)
  Receive Date: 20250522
  Receipt Date: 20250529
  Transmission Date: 20250717
  Serious: No
  Sender: ROCHE
  Company Number: UM-ROCHE-10000286293

PATIENT
  Age: 37 Year
  Sex: Female
  Weight: 61.23 kg

DRUGS (3)
  1. XOLAIR [Suspect]
     Active Substance: OMALIZUMAB
     Indication: Hypersensitivity
     Dosage: STRENGTH: 300 MG/2 ML
     Route: 058
     Dates: start: 202409
  2. XOLAIR [Suspect]
     Active Substance: OMALIZUMAB
     Indication: Mast cell activation syndrome
     Dosage: STRENGTH: 300 MG/2 ML
     Route: 058
     Dates: start: 202410
  3. XOLAIR [Suspect]
     Active Substance: OMALIZUMAB
     Indication: Idiopathic urticaria

REACTIONS (4)
  - Product dose omission issue [Unknown]
  - Contusion [Recovering/Resolving]
  - Accidental exposure to product [Unknown]
  - Device defective [Unknown]

NARRATIVE: CASE EVENT DATE: 20250508
